FAERS Safety Report 4480145-0 (Version None)
Quarter: 2004Q4

REPORT INFORMATION
  Report Type: 
  Country: None (occurrence: None)
  Receive Date: 20041020
  Receipt Date: 20030605
  Transmission Date: 20050328
  Serious: Yes (Other)
  Sender: FDA-Public Use
  Company Number: US-MERCK-0306USA00625

PATIENT
  Age: 46 Year
  Sex: Male
  Weight: 86 kg

DRUGS (9)
  1. VIOXX [Suspect]
     Route: 048
     Dates: start: 20010423
  2. VIOXX [Suspect]
     Route: 065
     Dates: start: 20010302
  3. XANAX [Concomitant]
     Route: 065
  4. VICODIN ES [Concomitant]
     Route: 065
  5. ULTRAM [Suspect]
     Route: 065
  6. AMITRIPTYLINE HYDROCHLORIDE [Concomitant]
     Route: 065
  7. NEURONTIN [Concomitant]
     Route: 065
  8. GLUCOPHAGE [Concomitant]
     Route: 065
  9. GLUCOTROL [Concomitant]
     Route: 065

REACTIONS (7)
  - ADVERSE EVENT [None]
  - ANGINA PECTORIS [None]
  - BLOOD PRESSURE INCREASED [None]
  - CONVULSION [None]
  - FACIAL PAIN [None]
  - HYPOAESTHESIA [None]
  - ORAL PAIN [None]
